FAERS Safety Report 7971328-3 (Version None)
Quarter: 2011Q4

REPORT INFORMATION
  Report Type: 
  Country: None (occurrence: None)
  Receive Date: 20111212
  Receipt Date: 20111208
  Transmission Date: 20120403
  Serious: Yes (Hospitalization)
  Sender: FDA-Public Use
  Company Number: CH-PFIZER INC-2011299420

PATIENT
  Age: 87 Year
  Sex: Female

DRUGS (11)
  1. OXAZEPAM [Concomitant]
     Dosage: 15 MG, 1X/DAY
     Route: 048
  2. MARCUMAR [Interacting]
     Indication: HEART VALVE REPLACEMENT
     Dosage: UNK
     Route: 048
     Dates: start: 19920101, end: 20100719
  3. HYDROXYUREA [Concomitant]
     Dosage: 500 MG, 5X/WEEKLY
     Route: 048
  4. MEFENAMIC ACID [Suspect]
     Indication: PAIN
     Dosage: 500 MG, 3X/DAY
     Route: 048
     Dates: start: 20100714, end: 20100719
  5. FERRO-FOLSAN [Concomitant]
     Dosage: 1 DF, 1X/DAY
     Route: 048
     Dates: end: 20100713
  6. FERRO-FOLSAN [Concomitant]
     Dosage: 1 DF, 3X/DAY
     Route: 048
     Dates: start: 20100714, end: 20100719
  7. ACETAMINOPHEN [Interacting]
     Indication: PAIN
     Dosage: 1 G, 4X/DAY
     Route: 048
     Dates: start: 20100714, end: 20100719
  8. CALCIMAGON-D3 [Concomitant]
     Dosage: 1 DF, 1X/DAY
     Route: 048
  9. ZOLOFT [Interacting]
     Dosage: 50 MG, 1X/DAY
     Route: 048
  10. NEXIUM [Concomitant]
     Dosage: 40 MG, 1X/DAY
     Route: 048
     Dates: end: 20100719
  11. FOSAMAX [Concomitant]
     Dosage: 70 MG, WEEKLY
     Route: 048

REACTIONS (3)
  - INTERNATIONAL NORMALISED RATIO INCREASED [None]
  - GASTROINTESTINAL HAEMORRHAGE [None]
  - DRUG INTERACTION [None]
